FAERS Safety Report 16154045 (Version 2)
Quarter: 2019Q3

REPORT INFORMATION
  Report Type: Spontaneous
  Country: US (occurrence: US)
  Receive Date: 20190403
  Receipt Date: 20190731
  Transmission Date: 20191004
  Serious: Yes (Other)
  Sender: FDA-Public Use
  Company Number: US-ASTRAZENECA-2019SE47895

PATIENT
  Age: 63 Year
  Sex: Female

DRUGS (31)
  1. NEXIUM [Suspect]
     Active Substance: ESOMEPRAZOLE MAGNESIUM
     Indication: GASTROOESOPHAGEAL REFLUX DISEASE
     Route: 048
     Dates: start: 20100302
  2. PRILOSEC [Suspect]
     Active Substance: OMEPRAZOLE MAGNESIUM
     Indication: GASTROOESOPHAGEAL REFLUX DISEASE
     Dosage: GENERIC
     Route: 065
     Dates: start: 2015, end: 2016
  3. PRAVASTATIN. [Concomitant]
     Active Substance: PRAVASTATIN
  4. CLINDAMYCIN. [Concomitant]
     Active Substance: CLINDAMYCIN
  5. NEXIUM [Suspect]
     Active Substance: ESOMEPRAZOLE MAGNESIUM
     Indication: GASTROOESOPHAGEAL REFLUX DISEASE
     Dosage: GENERIC
     Route: 065
  6. GLUCOVANCE [Concomitant]
     Active Substance: GLYBURIDE\METFORMIN HYDROCHLORIDE
  7. GLYBURIDE. [Concomitant]
     Active Substance: GLYBURIDE
  8. TRADJENTA [Concomitant]
     Active Substance: LINAGLIPTIN
  9. PRILOSEC [Suspect]
     Active Substance: OMEPRAZOLE MAGNESIUM
     Indication: GASTROOESOPHAGEAL REFLUX DISEASE
     Route: 048
  10. JANUMET [Concomitant]
     Active Substance: METFORMIN HYDROCHLORIDE\SITAGLIPTIN PHOSPHATE
  11. ALPRAZOLAM. [Concomitant]
     Active Substance: ALPRAZOLAM
  12. CALCITRIOL. [Concomitant]
     Active Substance: CALCITRIOL
  13. ALLOPURINOL. [Concomitant]
     Active Substance: ALLOPURINOL
  14. ONDANSETRON [Concomitant]
     Active Substance: ONDANSETRON
  15. TAMSULOSIN [Concomitant]
     Active Substance: TAMSULOSIN
  16. NEXIUM [Suspect]
     Active Substance: ESOMEPRAZOLE MAGNESIUM
     Indication: GASTROOESOPHAGEAL REFLUX DISEASE
     Dosage: GENERIC
     Route: 065
     Dates: start: 2015, end: 2016
  17. PREVACID [Suspect]
     Active Substance: LANSOPRAZOLE
     Indication: GASTROOESOPHAGEAL REFLUX DISEASE
     Route: 065
     Dates: start: 2008, end: 2009
  18. BENICAR [Concomitant]
     Active Substance: OLMESARTAN MEDOXOMIL
  19. NITROQUICK [Concomitant]
     Active Substance: NITROGLYCERIN
  20. CIPROFLOXACIN. [Concomitant]
     Active Substance: CIPROFLOXACIN
  21. CEFPROZIL. [Concomitant]
     Active Substance: CEFPROZIL
  22. AZITHROMYCIN ANHYDROUS. [Concomitant]
     Active Substance: AZITHROMYCIN ANHYDROUS
  23. HYOSCYAMINE. [Concomitant]
     Active Substance: HYOSCYAMINE
  24. FLEXERIL [Concomitant]
     Active Substance: CYCLOBENZAPRINE HYDROCHLORIDE
  25. CEPHALEXIN. [Concomitant]
     Active Substance: CEPHALEXIN
  26. BENZONATATE. [Concomitant]
     Active Substance: BENZONATATE
  27. RANITIDINE. [Concomitant]
     Active Substance: RANITIDINE
  28. GLIMEPIRIDE. [Concomitant]
     Active Substance: GLIMEPIRIDE
  29. SULFAMETHOXAZOLE [Concomitant]
     Active Substance: SULFAMETHOXAZOLE
  30. NEXIUM [Suspect]
     Active Substance: ESOMEPRAZOLE MAGNESIUM
     Indication: GASTROOESOPHAGEAL REFLUX DISEASE
     Route: 048
     Dates: start: 2010, end: 2015
  31. INDOMETHACIN. [Concomitant]
     Active Substance: INDOMETHACIN

REACTIONS (2)
  - Chronic kidney disease [Unknown]
  - Renal injury [Not Recovered/Not Resolved]

NARRATIVE: CASE EVENT DATE: 2016
